FAERS Safety Report 19115552 (Version 1)
Quarter: 2021Q2

REPORT INFORMATION
  Report Type: Spontaneous
  Country: IT (occurrence: IT)
  Receive Date: 20210409
  Receipt Date: 20210409
  Transmission Date: 20210717
  Serious: Yes (Other)
  Sender: FDA-Public Use
  Company Number: IT-VELOXIS PHARMACEUTICALS-2021VELIT-000260

PATIENT
  Age: 53 Year
  Sex: Male

DRUGS (6)
  1. ENVARSUS XR [Suspect]
     Active Substance: TACROLIMUS
     Indication: IMMUNOSUPPRESSANT DRUG THERAPY
     Dosage: 10 MILLIGRAM, QD
     Route: 065
  2. LOPINAVIR, RITONAVIR [Interacting]
     Active Substance: LOPINAVIR\RITONAVIR
     Indication: COVID-19
     Dosage: UNK
     Route: 065
     Dates: start: 20200324, end: 20200329
  3. HYDROXYCHLOROQUINE [Interacting]
     Active Substance: HYDROXYCHLOROQUINE
     Indication: COVID-19
     Dosage: 400 MILLIGRAM, QD
     Route: 065
     Dates: start: 20200324, end: 20200329
  4. ENVARSUS XR [Interacting]
     Active Substance: TACROLIMUS
     Dosage: 5 MILLIGRAM, QD
     Route: 065
     Dates: start: 202003, end: 20200327
  5. OXYGEN. [Concomitant]
     Active Substance: OXYGEN
     Indication: DYSPNOEA
     Dosage: 2 LITER
     Route: 065
     Dates: start: 20200324
  6. PREDNISOLONE. [Concomitant]
     Active Substance: PREDNISOLONE
     Indication: IMMUNOSUPPRESSANT DRUG THERAPY
     Dosage: 4 MILLIGRAM, QD
     Route: 065

REACTIONS (2)
  - Drug interaction [Recovering/Resolving]
  - Drug level increased [Recovering/Resolving]

NARRATIVE: CASE EVENT DATE: 20200327
